FAERS Safety Report 19156839 (Version 11)
Quarter: 2022Q1

REPORT INFORMATION
  Report Type: Spontaneous
  Country: US (occurrence: US)
  Receive Date: 20210420
  Receipt Date: 20220204
  Transmission Date: 20220423
  Serious: Yes (Other)
  Sender: FDA-Public Use
  Company Number: US-GLAXOSMITHKLINE-US2021AMR085976

PATIENT
  Sex: Female

DRUGS (6)
  1. ZEJULA [Suspect]
     Active Substance: NIRAPARIB
     Indication: Ovarian cancer
     Dosage: 200 MG, QD
     Route: 048
     Dates: start: 20210407, end: 20210603
  2. ZEJULA [Suspect]
     Active Substance: NIRAPARIB
     Dosage: 100 MG, QD
  3. ZEJULA [Suspect]
     Active Substance: NIRAPARIB
     Dosage: UNK UNK, Z (ALTERNATE BETWEEN 100MG AND 200MG EVERY OTHER DAY)
  4. ZEJULA [Suspect]
     Active Substance: NIRAPARIB
     Dosage: UNK (200MG EON ALTERNATING 100MG EON)
  5. ZEJULA [Suspect]
     Active Substance: NIRAPARIB
     Dosage: 200 MG, QD
     Dates: end: 202201
  6. TYLENOL [Concomitant]
     Active Substance: ACETAMINOPHEN
     Indication: Product used for unknown indication
     Dosage: UNK, AS NEEDED

REACTIONS (17)
  - Neuropathy peripheral [Not Recovered/Not Resolved]
  - Nausea [Unknown]
  - Constipation [Not Recovered/Not Resolved]
  - Decreased appetite [Unknown]
  - Fatigue [Unknown]
  - Haemoglobin decreased [Not Recovered/Not Resolved]
  - Chest pain [Unknown]
  - Dyspnoea exertional [Unknown]
  - Headache [Unknown]
  - Tumour marker increased [Not Recovered/Not Resolved]
  - Abdominal pain [Unknown]
  - Dyspnoea [Unknown]
  - Pleural effusion [Unknown]
  - Drug ineffective [Unknown]
  - Inappropriate schedule of product administration [Unknown]
  - Product dose omission issue [Unknown]
  - Off label use [Unknown]
